FAERS Safety Report 8165989-6 (Version None)
Quarter: 2012Q1

REPORT INFORMATION
  Report Type: 
  Country: None (occurrence: None)
  Receive Date: 20120223
  Receipt Date: 20120223
  Transmission Date: 20120608
  Serious: Yes (Disabling, Other)
  Sender: FDA-Public Use
  Company Number: None

PATIENT
  Sex: Female
  Weight: 58.9676 kg

DRUGS (1)
  1. CIPROFLOXACIN [Suspect]
     Indication: URINARY TRACT INFECTION
     Dosage: 500 MG 1 TAB 2X/D X 7 DAYS MOUTH  8 OF 14 TABLETS
     Route: 048
     Dates: start: 20120124, end: 20120128

REACTIONS (9)
  - PAIN IN EXTREMITY [None]
  - ANXIETY [None]
  - IMPAIRED WORK ABILITY [None]
  - BALANCE DISORDER [None]
  - ARTHRALGIA [None]
  - MUSCULOSKELETAL PAIN [None]
  - TENDONITIS [None]
  - MUSCULAR WEAKNESS [None]
  - ABASIA [None]
